FAERS Safety Report 9063031 (Version 1)
Quarter: 2013Q1

REPORT INFORMATION
  Report Type: Spontaneous
  Country: US (occurrence: US)
  Receive Date: 20130213
  Receipt Date: 20130213
  Transmission Date: 20140127
  Serious: Yes (Other)
  Sender: FDA-Public Use
  Company Number: US-BAYER-2013-017216

PATIENT
  Age: 41 Year
  Sex: Female
  Weight: 116.1 kg

DRUGS (14)
  1. YASMIN [Suspect]
  2. ZOLPIDEM [Concomitant]
     Indication: INSOMNIA
     Dosage: 0.75MG TABLET
     Route: 048
  3. TRIAMCINOLONE ACETONIDE [Concomitant]
     Dosage: APPLY 2 TIMES A DAY TO AFFECTED AREA
     Route: 061
  4. FLUTICASONE [Concomitant]
     Dosage: 50 MCG, USE 1 TO 2 SPRAYS NASALLY ONCE  DAY
     Route: 045
  5. CHERATUSSIN AC [Concomitant]
     Indication: COUGH
     Dosage: 10-100MG/5ML, TAKE 1 TEASPOONFUL ORALLY EVERY 4 TO 6 HOURS WHEN NEEDED
     Route: 048
  6. NASAREL [Concomitant]
     Dosage: 29MCG, USE 2 SPRAYS IN EACH NOSTRIL 2 TIMES A DAY
     Route: 045
  7. ALBUTEROL [Concomitant]
     Indication: WHEEZING
     Dosage: 90 MCG, 2 PUFFS ORALLY EVERY 4 HOURS AS NEEDED
     Route: 045
  8. QVAR [Concomitant]
     Dosage: 80 MCG, 1 PUFF ORALY 2 TIMES A DAY
     Route: 045
  9. PLAN B [Concomitant]
     Dosage: TAKE 2 TABLETS ORALLY AT ONCE AFTER UNPROTECTED
  10. MOTRIN [Concomitant]
  11. TYLENOL [PARACETAMOL] [Concomitant]
  12. KEFLEX [Concomitant]
  13. ANTIBIOTICS [Concomitant]
  14. NSAID^S [Concomitant]

REACTIONS (1)
  - Thrombophlebitis superficial [None]
